FAERS Safety Report 9138095 (Version 2)
Quarter: 2013Q1

REPORT INFORMATION
  Report Type: Spontaneous
  Country: JP (occurrence: JP)
  Receive Date: 20130304
  Receipt Date: 20130312
  Transmission Date: 20140127
  Serious: Yes (Other)
  Sender: FDA-Public Use
  Company Number: JP-PFIZER INC-2013074841

PATIENT
  Age: 67 Year
  Sex: Female

DRUGS (15)
  1. LIPITOR [Suspect]
     Indication: HYPERCHOLESTEROLAEMIA
     Dosage: 5 MG, 1X/DAY
     Route: 048
  2. ITOROL [Suspect]
     Dosage: UNK
     Route: 048
  3. FRANDOL [Suspect]
     Dosage: 40 MG, 1X/DAY
     Route: 062
  4. OMEPRAL [Suspect]
     Dosage: UNK
     Route: 065
  5. MUCOSALVAN [Suspect]
     Dosage: UNK
     Route: 048
  6. BAYASPIRIN [Suspect]
     Dosage: UNK
     Route: 048
  7. ALFAROL [Suspect]
     Dosage: UNK
     Route: 048
  8. SERENAL [Suspect]
     Dosage: UNK
     Route: 048
  9. GASCON [Suspect]
     Dosage: UNK
     Route: 048
  10. CALTAN [Suspect]
     Dosage: UNK
     Route: 048
  11. ZYLORIC [Suspect]
     Dosage: UNK
     Route: 048
  12. ASPENON [Suspect]
     Dosage: UNK
     Route: 065
  13. PROMAC [Suspect]
     Dosage: UNK
     Route: 048
  14. RENAGEL [Suspect]
     Dosage: UNK
     Route: 048
  15. NU LOTAN [Suspect]
     Dosage: UNK
     Route: 048

REACTIONS (1)
  - Ammonia increased [Unknown]
